FAERS Safety Report 7289391-4 (Version None)
Quarter: 2011Q1

REPORT INFORMATION
  Report Type: 
  Country: None (occurrence: None)
  Receive Date: 20110211
  Receipt Date: 20110207
  Transmission Date: 20110831
  Serious: Yes (Hospitalization)
  Sender: FDA-Public Use
  Company Number: FR-PFIZER INC-2010148899

PATIENT
  Age: 54 Year
  Sex: Female

DRUGS (9)
  1. SOLU-MEDROL [Suspect]
     Dosage: 60 MG, EVERY 3 WEEKS
     Dates: start: 20060608, end: 20060629
  2. CORTANCYL [Suspect]
     Indication: FOLLICLE CENTRE LYMPHOMA, FOLLICULAR GRADE I, II, III STAGE III
     Dosage: 70 MG PER COURSE FROM DAY 2-5
     Route: 042
     Dates: start: 20060202, end: 20060518
  3. ONCOVIN [Suspect]
     Indication: FOLLICLE CENTRE LYMPHOMA, FOLLICULAR GRADE I, II, III STAGE III
     Dosage: 2 MG, EVERY 3 WEEKS
     Route: 042
     Dates: start: 20060202, end: 20060518
  4. TEGELINE [Suspect]
  5. SOLU-MEDROL [Suspect]
     Indication: FOLLICLE CENTRE LYMPHOMA, FOLLICULAR GRADE I, II, III STAGE III
     Dosage: 70 MG, EVERY 3 WEEKS
     Route: 042
     Dates: start: 20060202, end: 20060518
  6. ENDOXAN [Suspect]
     Indication: FOLLICLE CENTRE LYMPHOMA, FOLLICULAR GRADE I, II, III STAGE III
     Dosage: 1280 MG, EVERY 3 WEEKS
     Route: 042
     Dates: start: 20060202, end: 20060518
  7. MABTHERA [Suspect]
     Dosage: 630MG, ONCE EVERY 8 WEEKS
     Dates: start: 20060101, end: 20080513
  8. ADRIAMYCIN PFS [Suspect]
     Indication: FOLLICLE CENTRE LYMPHOMA, FOLLICULAR GRADE I, II, III STAGE III
     Dosage: 85 MG, EVERY 3 WEEKS
     Route: 042
     Dates: start: 20060202, end: 20060518
  9. MABTHERA [Suspect]
     Indication: FOLLICLE CENTRE LYMPHOMA, FOLLICULAR GRADE I, II, III STAGE III
     Dosage: 640 MG, EVERY 3 WEEKS
     Route: 042
     Dates: start: 20060202, end: 20060628

REACTIONS (3)
  - HYPOGAMMAGLOBULINAEMIA [None]
  - INFECTION SUSCEPTIBILITY INCREASED [None]
  - TONSILLITIS [None]
